FAERS Safety Report 7210889-9 (Version None)
Quarter: 2010Q4

REPORT INFORMATION
  Report Type: 
  Country: None (occurrence: None)
  Receive Date: 20101227
  Receipt Date: 20101216
  Transmission Date: 20110411
  Serious: Yes (Other)
  Sender: FDA-Public Use
  Company Number: CAP10000459

PATIENT
  Age: 59 Year
  Sex: Female

DRUGS (5)
  1. ACTONEL [Suspect]
     Indication: OSTEOPOROSIS
     Dosage: 150 MG ONCE MONTHLY, ORAL
     Route: 048
     Dates: start: 20091201
  2. ACTONEL [Suspect]
     Indication: OSTEOPOROSIS
     Dosage: 35 MG ONCE WEEKLY, ORAL
     Route: 048
     Dates: end: 20091201
  3. CALCIUM (CALCIUM) [Concomitant]
  4. ERGOCALCIFEROL [Concomitant]
  5. STRESS B (ASCORBIC ACID, VITAMIN-B-KOMPLEX STANDARD) [Concomitant]

REACTIONS (6)
  - ARTHRALGIA [None]
  - INTRACRANIAL ANEURYSM [None]
  - MALAISE [None]
  - MYALGIA [None]
  - PAIN IN JAW [None]
  - TEMPOROMANDIBULAR JOINT SYNDROME [None]
